FAERS Safety Report 8259132-2 (Version None)
Quarter: 2012Q2

REPORT INFORMATION
  Report Type: 
  Country: None (occurrence: None)
  Receive Date: 20120404
  Receipt Date: 20120326
  Transmission Date: 20120825
  Serious: Yes (Other)
  Sender: FDA-Public Use
  Company Number: TH-ASTRAZENECA-2012SE18915

PATIENT
  Age: 77 Year
  Sex: Male

DRUGS (6)
  1. VALPROIC ACID [Interacting]
     Indication: CONVULSION
     Route: 065
  2. MEROPENEM [Suspect]
     Route: 042
  3. TOPIRAMATE [Concomitant]
  4. VALPROIC ACID [Interacting]
     Route: 042
  5. MEROPENEM [Interacting]
     Route: 042
  6. TOPIRAMATE [Concomitant]
     Indication: CONVULSION

REACTIONS (3)
  - DRUG LEVEL DECREASED [None]
  - DRUG INTERACTION [None]
  - CONVULSION [None]
